FAERS Safety Report 8016285-9 (Version None)
Quarter: 2011Q4

REPORT INFORMATION
  Report Type: 
  Country: None (occurrence: None)
  Receive Date: 20111230
  Receipt Date: 20111222
  Transmission Date: 20120403
  Serious: Yes (Disabling)
  Sender: FDA-Public Use
  Company Number: US-MERCK-1108USA03121

PATIENT
  Age: 58 Year
  Sex: Female
  Weight: 75 kg

DRUGS (2)
  1. FOSAMAX PLUS D [Suspect]
     Indication: PROPHYLAXIS
     Route: 048
     Dates: start: 20061101, end: 20080801
  2. FOSAMAX [Suspect]
     Indication: PROPHYLAXIS
     Route: 048
     Dates: start: 20010601

REACTIONS (2)
  - FEMUR FRACTURE [None]
  - LIMB ASYMMETRY [None]
